FAERS Safety Report 5669332-3 (Version None)
Quarter: 2008Q1

REPORT INFORMATION
  Report Type: 
  Country: None (occurrence: None)
  Receive Date: 20080317
  Receipt Date: 20080306
  Transmission Date: 20080703
  Serious: Yes (Other)
  Sender: FDA-Public Use
  Company Number: PHNU2008DE01220

PATIENT
  Age: 69 Year
  Sex: Male

DRUGS (1)
  1. ZOMETA [Suspect]
     Indication: METASTASES TO BONE
     Dosage: 4 MG, UNK
     Route: 042
     Dates: start: 20080304

REACTIONS (6)
  - ARRHYTHMIA [None]
  - BONE PAIN [None]
  - CHILLS [None]
  - INFLUENZA LIKE ILLNESS [None]
  - MALAISE [None]
  - PYREXIA [None]
